FAERS Safety Report 5322526-9 (Version None)
Quarter: 2007Q2

REPORT INFORMATION
  Report Type: 
  Country: None (occurrence: None)
  Receive Date: 20070223
  Receipt Date: 20060807
  Transmission Date: 20071010
  Serious: Yes (Life-Threatening, Hospitalization)
  Sender: FDA-Public Use
  Company Number: 255596

PATIENT
  Age: 41 Year
  Sex: Male
  Weight: 117.9 kg

DRUGS (1)
  1. PRANDIN [Suspect]
     Indication: DIABETES MELLITUS NON-INSULIN-DEPENDENT
     Dosage: 1 MG, TID, ORAL
     Route: 048
     Dates: start: 20050901

REACTIONS (1)
  - ANAPHYLACTIC SHOCK [None]
